FAERS Safety Report 14104378 (Version 1)
Quarter: 2017Q4

REPORT INFORMATION
  Report Type: Spontaneous
  Country: US (occurrence: US)
  Receive Date: 20171018
  Receipt Date: 20171018
  Transmission Date: 20180321
  Serious: No
  Sender: FDA-Public Use
  Company Number: US-AMGEN-USASP2017117219

PATIENT
  Age: 65 Year
  Sex: Female

DRUGS (8)
  1. CALCIUM + VITAMIN D [Concomitant]
     Active Substance: CALCIUM\VITAMIN D
  2. ZETIA [Concomitant]
     Active Substance: EZETIMIBE
  3. TYLENOL [Concomitant]
     Active Substance: ACETAMINOPHEN
  4. CELEBREX [Concomitant]
     Active Substance: CELECOXIB
  5. FLEXERIL [Concomitant]
     Active Substance: CYCLOBENZAPRINE HYDROCHLORIDE
     Dosage: UNK UNK, AS NECESSARY
  6. DIOVAN [Concomitant]
     Active Substance: VALSARTAN
  7. PROLIA [Suspect]
     Active Substance: DENOSUMAB
     Indication: OSTEOPOROSIS POSTMENOPAUSAL
     Dosage: UNK
     Route: 065
     Dates: start: 20170728
  8. SYNTHROID [Concomitant]
     Active Substance: LEVOTHYROXINE SODIUM

REACTIONS (5)
  - Stenosis [Unknown]
  - Insomnia [Unknown]
  - Intervertebral disc protrusion [Unknown]
  - Arthralgia [Unknown]
  - Pain [Unknown]

NARRATIVE: CASE EVENT DATE: 2017
